FAERS Safety Report 17083061 (Version 1)
Quarter: 2019Q4

REPORT INFORMATION
  Report Type: Spontaneous
  Country: US (occurrence: US)
  Receive Date: 20191127
  Receipt Date: 20191127
  Transmission Date: 20200122
  Serious: Yes (Other)
  Sender: FDA-Public Use
  Company Number: US-BAYER-2019-213002

PATIENT
  Age: 68 Year
  Sex: Male

DRUGS (2)
  1. CIPROFLOXACIN. [Suspect]
     Active Substance: CIPROFLOXACIN
     Indication: COLITIS
     Dosage: UNK
     Route: 048
  2. METRONIDAZOLE. [Concomitant]
     Active Substance: METRONIDAZOLE
     Indication: COLITIS
     Dosage: UNK

REACTIONS (1)
  - Hypoglycaemia [Recovered/Resolved]
